FAERS Safety Report 26101604 (Version 1)
Quarter: 2025Q4

REPORT INFORMATION
  Report Type: Spontaneous
  Country: GB (occurrence: GB)
  Receive Date: 20251128
  Receipt Date: 20251128
  Transmission Date: 20260118
  Serious: Yes (Disabling, Other)
  Sender: RANBAXY
  Company Number: GB-MHRA-EMIS-4707-d636644e-f883-44ec-824d-c2a7f36611b6

PATIENT
  Age: 29 Year
  Sex: Male
  Weight: 36 kg

DRUGS (4)
  1. ISOTRETINOIN [Suspect]
     Active Substance: ISOTRETINOIN
     Indication: Product used for unknown indication
     Dosage: TDS - 30MG20MG
     Route: 065
     Dates: start: 20160801, end: 20170801
  2. TETRACYCLINE [Concomitant]
     Active Substance: TETRACYCLINE
     Indication: Product used for unknown indication
     Dosage: TWO TO BE TAKEN TWICE A DAY FOR HIDRADENITIS SUPPURATIVA
     Route: 065
  3. SILDENAFIL [Concomitant]
     Active Substance: SILDENAFIL
     Indication: Product used for unknown indication
     Dosage: ONE TO BE TAKEN AS DIRECTED
     Route: 065
  4. CHLORHEXIDINE [Concomitant]
     Active Substance: CHLORHEXIDINE
     Indication: Product used for unknown indication
     Dosage: 2000 MILLILITER, TO BE USED AS DIRECTED
     Route: 065

REACTIONS (2)
  - Erectile dysfunction [Not Recovered/Not Resolved]
  - Hypogonadism [Unknown]
